FAERS Safety Report 8580110-8 (Version None)
Quarter: 2012Q3

REPORT INFORMATION
  Report Type: 
  Country: None (occurrence: None)
  Receive Date: 20120808
  Receipt Date: 20120803
  Transmission Date: 20120928
  Serious: Yes (Other)
  Sender: FDA-Public Use
  Company Number: JP-PFIZER INC-2012154328

PATIENT
  Age: 68 Year
  Sex: Male

DRUGS (1)
  1. TORISEL [Suspect]
     Route: 041

REACTIONS (1)
  - ATRIOVENTRICULAR BLOCK COMPLETE [None]
